FAERS Safety Report 14772134 (Version 1)
Quarter: 2018Q2

REPORT INFORMATION
  Report Type: Report from Study
  Country: BR (occurrence: BR)
  Receive Date: 20180417
  Receipt Date: 20180417
  Transmission Date: 20180711
  Serious: Yes (Hospitalization, Other)
  Sender: FDA-Public Use
  Company Number: BR-UCBSA-2018016120

PATIENT
  Age: 11 Month
  Sex: Female

DRUGS (2)
  1. LEVETIRACETAM. [Suspect]
     Active Substance: LEVETIRACETAM
     Indication: EPILEPSY
     Dosage: 3.3 ML, 2X/DAY (BID)
     Route: 048
     Dates: start: 201605
  2. LAMOTRIGINE. [Concomitant]
     Active Substance: LAMOTRIGINE
     Indication: EPILEPSY
     Dosage: 0.5 DF, 1/2 TABLET, 2X/DAY (BID)
     Route: 048

REACTIONS (3)
  - Hydrocephalus [Not Recovered/Not Resolved]
  - Head injury [Unknown]
  - Seizure [Not Recovered/Not Resolved]

NARRATIVE: CASE EVENT DATE: 201611
